FAERS Safety Report 12653522 (Version 1)
Quarter: 2016Q3

REPORT INFORMATION
  Report Type: Spontaneous
  Country: US (occurrence: US)
  Receive Date: 20160815
  Receipt Date: 20160815
  Transmission Date: 20161109
  Serious: No
  Sender: FDA-Public Use
  Company Number: US-009507513-1607USA002845

PATIENT
  Sex: Male

DRUGS (1)
  1. PROVENTIL [Suspect]
     Active Substance: ALBUTEROL
     Dosage: 180 MICROGRAM, Q4H
     Route: 055
     Dates: start: 20160616

REACTIONS (2)
  - Product quality issue [Unknown]
  - Drug dose omission [Unknown]
